FAERS Safety Report 25029877 (Version 1)
Quarter: 2025Q1

REPORT INFORMATION
  Report Type: Spontaneous
  Country: US (occurrence: US)
  Receive Date: 20250303
  Receipt Date: 20250303
  Transmission Date: 20250409
  Serious: Yes (Other)
  Sender: SPECGX
  Company Number: US-SPECGX-T202500309

PATIENT
  Age: 36 Year
  Sex: Female
  Weight: 102 kg

DRUGS (4)
  1. RESTORIL [Suspect]
     Active Substance: TEMAZEPAM
     Indication: Product used for unknown indication
     Route: 065
     Dates: end: 20241204
  2. RESTORIL [Suspect]
     Active Substance: TEMAZEPAM
     Route: 065
     Dates: start: 202412
  3. LUMRYZ [Suspect]
     Active Substance: SODIUM OXYBATE
     Indication: Narcolepsy
     Dosage: 4.5 GRAM, QHS (EXTENDED-RELEASE)
     Route: 065
     Dates: start: 20241204, end: 202412
  4. LUMRYZ [Suspect]
     Active Substance: SODIUM OXYBATE
     Dosage: 4.5 GRAM, QHS (EXTENDED-RELEASE)
     Route: 065
     Dates: start: 20250112

REACTIONS (2)
  - Syncope [Recovered/Resolved]
  - Drug withdrawal syndrome [Unknown]

NARRATIVE: CASE EVENT DATE: 20241201
